FAERS Safety Report 14674089 (Version 1)
Quarter: 2018Q1

REPORT INFORMATION
  Report Type: Spontaneous
  Country: CA (occurrence: CA)
  Receive Date: 20180323
  Receipt Date: 20180323
  Transmission Date: 20180509
  Serious: Yes (Other)
  Sender: FDA-Public Use
  Company Number: CA-BAYER-2018-051760

PATIENT
  Age: 41 Year
  Sex: Female
  Weight: 81.64 kg

DRUGS (2)
  1. MIRENA [Suspect]
     Active Substance: LEVONORGESTREL
     Indication: MENSTRUAL DISORDER
  2. MIRENA [Suspect]
     Active Substance: LEVONORGESTREL
     Indication: MENSTRUAL DISORDER
     Dosage: 20 MCG/24HR, CONT
     Route: 015

REACTIONS (26)
  - Palpitations [Recovered/Resolved]
  - Panic attack [Recovered/Resolved]
  - Cervix inflammation [Recovered/Resolved]
  - Hunger [Recovered/Resolved]
  - Abdominal pain [Recovered/Resolved]
  - Dizziness [Recovered/Resolved]
  - Hypoaesthesia [Recovered/Resolved]
  - Disturbance in attention [Recovered/Resolved]
  - Haemorrhage [Recovered/Resolved]
  - Heart rate increased [Recovered/Resolved]
  - Mood swings [Recovered/Resolved]
  - Muscle atrophy [Recovered/Resolved]
  - Nausea [Recovered/Resolved]
  - Quality of life decreased [Recovered/Resolved]
  - Visual impairment [Recovered/Resolved]
  - Asthenia [Recovered/Resolved]
  - Cervix erythema [Recovered/Resolved]
  - Depression [Recovered/Resolved]
  - Loss of consciousness [Recovered/Resolved]
  - Uterine enlargement [Recovered/Resolved]
  - Vaginal discharge [Recovered/Resolved]
  - Vaginal haemorrhage [Recovered/Resolved]
  - Weight increased [Recovered/Resolved]
  - Cardiac discomfort [Recovered/Resolved]
  - Dyspnoea [Recovered/Resolved]
  - Fatigue [Recovered/Resolved]
